FAERS Safety Report 24288344 (Version 7)
Quarter: 2025Q2

REPORT INFORMATION
  Report Type: Report from Study
  Country: ES (occurrence: ES)
  Receive Date: 20240905
  Receipt Date: 20250526
  Transmission Date: 20250716
  Serious: Yes (Death, Hospitalization, Other)
  Sender: ABBVIE
  Company Number: ES-ABBVIE-5902776

PATIENT
  Age: 60 Year
  Sex: Male

DRUGS (2)
  1. FOSCARBIDOPA\FOSLEVODOPA [Suspect]
     Active Substance: FOSCARBIDOPA\FOSLEVODOPA
     Indication: Parkinson^s disease
     Route: 050
     Dates: start: 20200224
  2. FOSCARBIDOPA\FOSLEVODOPA [Suspect]
     Active Substance: FOSCARBIDOPA\FOSLEVODOPA

REACTIONS (6)
  - Hepatic cancer [Fatal]
  - Chromaturia [Recovered/Resolved]
  - Hepatic mass [Unknown]
  - Pancreatic carcinoma [Fatal]
  - Jaundice [Recovered/Resolved]
  - Pancreatic mass [Unknown]

NARRATIVE: CASE EVENT DATE: 20240825
